FAERS Safety Report 13625821 (Version 1)
Quarter: 2017Q2

REPORT INFORMATION
  Report Type: Spontaneous
  Country: US (occurrence: US)
  Receive Date: 20170608
  Receipt Date: 20170608
  Transmission Date: 20170830
  Serious: Yes (Death, Life-Threatening, Hospitalization, Disabling, Other)
  Sender: FDA-Public Use
  Company Number: None

PATIENT
  Age: 22 Year
  Sex: Male
  Weight: 65.77 kg

DRUGS (2)
  1. AVODART [Suspect]
     Active Substance: DUTASTERIDE
     Indication: ANDROGENETIC ALOPECIA
     Route: 048
     Dates: start: 200807, end: 200810
  2. PROPECIA [Suspect]
     Active Substance: FINASTERIDE
     Indication: ANDROGENETIC ALOPECIA
     Route: 048
     Dates: start: 200702, end: 200807

REACTIONS (26)
  - Testicular atrophy [None]
  - Dry skin [None]
  - Alcohol use [None]
  - Penile size reduced [None]
  - Depression [None]
  - Male orgasmic disorder [None]
  - Anxiety [None]
  - Erectile dysfunction [None]
  - Loss of libido [None]
  - Gynaecomastia [None]
  - Psychotic disorder [None]
  - Muscular weakness [None]
  - Completed suicide [None]
  - Peyronie^s disease [None]
  - Muscle atrophy [None]
  - Self-medication [None]
  - Impaired work ability [None]
  - Semen volume decreased [None]
  - Skin atrophy [None]
  - Bradyphrenia [None]
  - Ejaculation failure [None]
  - Flat affect [None]
  - Insomnia [None]
  - Cognitive disorder [None]
  - Memory impairment [None]
  - Asphyxia [None]

NARRATIVE: CASE EVENT DATE: 20081124
